FAERS Safety Report 6664201-4 (Version None)
Quarter: 2010Q2

REPORT INFORMATION
  Report Type: 
  Country: None (occurrence: None)
  Receive Date: 20100401
  Receipt Date: 20100322
  Transmission Date: 20101027
  Serious: Yes (Hospitalization)
  Sender: FDA-Public Use
  Company Number: ES-PFIZER INC-2010036768

PATIENT
  Age: 2 Year
  Sex: Male
  Weight: 11 kg

DRUGS (2)
  1. IRINOTECAN HYDROCHLORIDE [Suspect]
     Indication: MEDULLOBLASTOMA
     Dosage: 10 MG/M2, 6 MG, EVERY 3 WEEKS
     Route: 042
     Dates: start: 20100301
  2. TEMOZOLOMIDE [Suspect]
     Indication: MEDULLOBLASTOMA
     Dosage: 125 MG/M2, 70 MG, EVERY 3 WEEKS
     Route: 048
     Dates: start: 20100301

REACTIONS (1)
  - GASTROENTERITIS [None]
